FAERS Safety Report 9140664 (Version 1)
Quarter: 2013Q1

REPORT INFORMATION
  Report Type: Spontaneous
  Country: GR (occurrence: GR)
  Receive Date: 20130305
  Receipt Date: 20130305
  Transmission Date: 20140127
  Serious: Yes (Hospitalization)
  Sender: FDA-Public Use
  Company Number: GR-GLAXOSMITHKLINE-B0760072A

PATIENT
  Age: 72 Year
  Sex: Female

DRUGS (6)
  1. VALACYCLOVIR [Suspect]
     Indication: HERPES VIRUS INFECTION
     Dosage: 1000MG THREE TIMES PER DAY
     Route: 048
  2. NIFEDIPINE [Concomitant]
     Dosage: 5MG PER DAY
  3. IRBESARTAN [Concomitant]
     Dosage: 150MG PER DAY
  4. UNKNOWN DRUG [Concomitant]
     Dosage: 60MG PER DAY
  5. ATORVASTATIN [Concomitant]
     Dosage: 10MG PER DAY
  6. ALFACALCIDOL [Concomitant]

REACTIONS (12)
  - Neurotoxicity [Recovered/Resolved]
  - Altered state of consciousness [Unknown]
  - Aphasia [Unknown]
  - Ataxia [Unknown]
  - Hypoaesthesia [Unknown]
  - Hallucination, visual [Unknown]
  - Anuria [Unknown]
  - Dysarthria [Unknown]
  - Dysaesthesia [Unknown]
  - Coordination abnormal [Unknown]
  - Agitation [Unknown]
  - Dizziness [Unknown]
